FAERS Safety Report 9878416 (Version 2)
Quarter: 2014Q1

REPORT INFORMATION
  Report Type: Spontaneous
  Country: US (occurrence: US)
  Receive Date: 20140206
  Receipt Date: 20140206
  Transmission Date: 20141002
  Serious: No
  Sender: FDA-Public Use
  Company Number: US-ALLERGAN-1311131US

PATIENT
  Age: 6 Decade
  Sex: Female

DRUGS (10)
  1. BOTOX [Suspect]
     Indication: MIGRAINE
     Dosage: 155 UNITS, SINGLE
     Route: 030
     Dates: start: 20130305, end: 20130305
  2. EFFEXOR [Concomitant]
     Indication: DEPRESSION
  3. LEVOXYL [Concomitant]
     Indication: THYROID DISORDER
  4. XOPENEX [Concomitant]
     Indication: PRODUCT USED FOR UNKNOWN INDICATION
     Route: 055
  5. SYMBICORT [Concomitant]
     Indication: PRODUCT USED FOR UNKNOWN INDICATION
     Route: 055
  6. LAMOTRIGINE [Concomitant]
     Indication: DEPRESSION
  7. ANTERGRAT PLUS [Concomitant]
     Indication: SMALL CELL CARCINOMA
  8. MOBIC [Concomitant]
     Indication: ARTHROPATHY
  9. VALIUM [Concomitant]
     Indication: PRODUCT USED FOR UNKNOWN INDICATION
  10. REVALIS [Concomitant]
     Indication: PRODUCT USED FOR UNKNOWN INDICATION

REACTIONS (8)
  - Adverse event [Recovered/Resolved]
  - Cellulitis [Recovered/Resolved]
  - Local swelling [Recovered/Resolved]
  - Muscular weakness [Recovered/Resolved]
  - Muscular weakness [Recovered/Resolved]
  - Dysphagia [Recovered/Resolved]
  - Dyspnoea [Recovered/Resolved]
  - Malaise [Recovered/Resolved]
